FAERS Safety Report 6144743-0 (Version None)
Quarter: 2009Q2

REPORT INFORMATION
  Report Type: 
  Country: None (occurrence: None)
  Receive Date: 20090401
  Receipt Date: 20090401
  Transmission Date: 20091009
  Serious: Yes (Life-Threatening, Hospitalization)
  Sender: FDA-Public Use
  Company Number: None

PATIENT
  Age: 57 Year
  Sex: Female
  Weight: 45.3597 kg

DRUGS (1)
  1. IMITREX [Suspect]

REACTIONS (3)
  - ASTHENIA [None]
  - GASTROINTESTINAL INFECTION [None]
  - INTESTINAL OBSTRUCTION [None]
